FAERS Safety Report 9447753 (Version 3)
Quarter: 2014Q1

REPORT INFORMATION
  Report Type: Spontaneous
  Country: FR (occurrence: None)
  Receive Date: 20130805
  Receipt Date: 20140122
  Transmission Date: 20141002
  Serious: Yes (Hospitalization)
  Sender: FDA-Public Use
  Company Number: SYM-2013-07621

PATIENT
  Age: 73 Year
  Sex: Male

DRUGS (20)
  1. 5 FU [Suspect]
     Indication: COLORECTAL CANCER METASTATIC
     Route: 040
     Dates: start: 20130417, end: 20130417
  2. AFLIBERCEPT [Suspect]
     Indication: COLORECTAL CANCER METASTATIC
     Dosage: 288 MG, EVERY OTHER WEEK, INTRAVENOUS (NOT OTHERWISE SPECIFED)
     Route: 042
     Dates: start: 20130417, end: 20130417
  3. IRINOTECAN [Suspect]
     Indication: COLORECTAL CANCER METASTATIC
     Dosage: 350 MG, EVERY OTHER WEEK, INTRAVENOUS (NOT OTHEWISE SPECIFIED)
     Route: 042
     Dates: start: 20130417, end: 20130417
  4. LEUCOVORIN (FOLINIC ACID) (SOLUTION FOR INFUSION) (FOLINIC ACID) [Suspect]
     Indication: COLORECTAL CANCER METASTATIC
     Dosage: 770 MG, EVERY OTHER WEEK, INTRAVENOUS (NOT OTHERWISE SPECIFIED)
     Route: 042
     Dates: start: 20130417, end: 20130417
  5. FORLAX (MACROGOL) (MACROGOL) [Concomitant]
  6. TAHOR (ATORVASTATIN) CALCIUM) [Concomitant]
  7. PRAXILENE (NAFTIDROFURYL OXALATE) [Concomitant]
  8. CALCIUM CHANNEL BLOCKERS (CALCIUM CHANNEL BLOCKERS) [Concomitant]
  9. CACIT (CACIT)  (CITRIC AICD, CALCIUM CARBONATE) [Concomitant]
  10. ANTIEPILEPTICS (ANTIEPILEPTICS) [Concomitant]
  11. LOPERAMIDE (LOPERAMIDE) [Concomitant]
  12. PARACETAMOL (PARACETAMOL) [Concomitant]
  13. ERYTHROPOIETIN (ERYTHROPOIETIN) [Concomitant]
  14. ANTITHROMBOTIC AGENTS (ANTITHROMBOTIC AGENTS) [Concomitant]
  15. SEROTONIN ANTAGONISTS (SEROTONIN ANTAGONISITS) [Concomitant]
  16. ZOPICLONE (ZOPICLONE) (ZOPLICONE) [Concomitant]
  17. DEXAMETHASOME (DEXAMETHASONE) [Concomitant]
  18. BELLADONNA ALKALOIDS (ATROPA BELLADONNA EXTRACT) (ATROPA BELLLADONNA EXTRACT) [Concomitant]
  19. ANALGESICS (ANALGESICS) [Concomitant]
  20. ZYMAFLUOR (SODIUM FLUORIDE) [Concomitant]

REACTIONS (4)
  - Fatigue [None]
  - Decreased appetite [None]
  - Nausea [None]
  - General physical condition abnormal [None]
